FAERS Safety Report 4686892-X (Version None)
Quarter: 2005Q2

REPORT INFORMATION
  Report Type: 
  Country: None (occurrence: None)
  Receive Date: 20050608
  Receipt Date: 20050222
  Transmission Date: 20051028
  Serious: Yes (Death)
  Sender: FDA-Public Use
  Company Number: 10640

PATIENT
  Sex: 0

DRUGS (3)
  1. METHOTREXATE [Suspect]
     Dosage: 2000 MG/M2
  2. DOXORUBICIN [Suspect]
     Indication: BONE SARCOMA
     Dosage: 75 MG/M2
  3. VINCRISTINE [Suspect]
     Indication: BONE SARCOMA
     Dosage: 1.5 MG/M2

REACTIONS (2)
  - NEPHROPATHY TOXIC [None]
  - PANCYTOPENIA [None]
